FAERS Safety Report 7676866-9 (Version None)
Quarter: 2011Q3

REPORT INFORMATION
  Report Type: 
  Country: None (occurrence: None)
  Receive Date: 20110805
  Receipt Date: 20110726
  Transmission Date: 20111222
  Serious: Yes (Hospitalization)
  Sender: FDA-Public Use
  Company Number: CIP11001863

PATIENT
  Age: 60 Year
  Sex: Female

DRUGS (6)
  1. OPTINATE (RISEDRONATE SODIUM) TABLET, 35MG [Suspect]
     Indication: OSTEOPENIA
     Dosage: 35 MG ONCE WEEKLY, ORAL
     Route: 048
     Dates: start: 20040101
  2. TREXAN /00113801/ (METHOTREXATE) [Concomitant]
  3. VITAMIN D [Concomitant]
  4. HUMIRA [Concomitant]
  5. CALCIUM (CALCIUM) [Concomitant]
  6. PREDNISOLONE [Concomitant]

REACTIONS (15)
  - COMMINUTED FRACTURE [None]
  - PROCEDURAL COMPLICATION [None]
  - LOSS OF ANATOMICAL ALIGNMENT AFTER FRACTURE REDUCTION [None]
  - PAIN IN EXTREMITY [None]
  - WEIGHT BEARING DIFFICULTY [None]
  - BLOOD ACID PHOSPHATASE INCREASED [None]
  - FALL [None]
  - PAIN [None]
  - FEMUR FRACTURE [None]
  - BONE DISORDER [None]
  - BLOOD ALKALINE PHOSPHATASE INCREASED [None]
  - FRACTURE DISPLACEMENT [None]
  - HIGH TURNOVER OSTEOPATHY [None]
  - OSTEOGENESIS IMPERFECTA [None]
  - ARTHRALGIA [None]
